FAERS Safety Report 12477471 (Version 1)
Quarter: 2016Q2

REPORT INFORMATION
  Report Type: Report from Study
  Country: US (occurrence: US)
  Receive Date: 20160617
  Receipt Date: 20160617
  Transmission Date: 20160815
  Serious: Yes (Other)
  Sender: FDA-Public Use
  Company Number: US-APOPHARMA-2016AP009029

PATIENT
  Sex: Female
  Weight: 95 kg

DRUGS (4)
  1. GABAPENTIN. [Concomitant]
     Active Substance: GABAPENTIN
     Indication: PRODUCT USED FOR UNKNOWN INDICATION
     Dosage: UNK
     Route: 065
  2. NAPROXEN. [Concomitant]
     Active Substance: NAPROXEN
     Indication: PRODUCT USED FOR UNKNOWN INDICATION
     Dosage: UNK
     Route: 065
  3. DEFERIPRONE [Suspect]
     Active Substance: DEFERIPRONE
     Indication: SUBARACHNOID HAEMORRHAGE
     Dosage: 10.5 MG/KG, BID
     Route: 048
     Dates: start: 20160509
  4. DEFERIPRONE [Suspect]
     Active Substance: DEFERIPRONE
     Indication: DURAL TEAR

REACTIONS (4)
  - Neutrophil count decreased [Recovered/Resolved]
  - Fatigue [Recovering/Resolving]
  - White blood cell count decreased [Recovered/Resolved]
  - Furuncle [Recovering/Resolving]
